FAERS Safety Report 4662522-8 (Version None)
Quarter: 2005Q2

REPORT INFORMATION
  Report Type: 
  Country: None (occurrence: None)
  Receive Date: 20050513
  Receipt Date: 20050513
  Transmission Date: 20051028
  Serious: Yes (Hospitalization)
  Sender: FDA-Public Use
  Company Number: None

PATIENT
  Age: 56 Year
  Sex: Male
  Weight: 94.6 kg

DRUGS (19)
  1. ALEMTUZAMAB  30 MG [Suspect]
  2. CELLCEPT [Concomitant]
  3. THYMOGLOBULIN [Concomitant]
  4. LASIX [Concomitant]
  5. ATENOLOL [Concomitant]
  6. VALCYTE [Concomitant]
  7. ASPIRIN [Concomitant]
  8. BACTRIM [Concomitant]
  9. NOVALOG SS [Concomitant]
  10. LANTUS [Concomitant]
  11. RAPAMUNE [Concomitant]
  12. ARANESP [Concomitant]
  13. MYCELEX [Concomitant]
  14. CALCIUM GLUCONATE [Concomitant]
  15. LIPITOR [Concomitant]
  16. PRILOSEC [Concomitant]
  17. VIT E [Concomitant]
  18. COLACE [Concomitant]
  19. SODIUM BICARB [Concomitant]

REACTIONS (1)
  - CHEST PAIN [None]
